FAERS Safety Report 22207530 (Version 1)
Quarter: 2023Q2

REPORT INFORMATION
  Report Type: Spontaneous
  Country: US (occurrence: US)
  Receive Date: 20230413
  Receipt Date: 20230413
  Transmission Date: 20230722
  Serious: No
  Sender: FDA-Public Use
  Company Number: US-BRISTOL-MYERS SQUIBB COMPANY-2023-052723

PATIENT
  Age: 80 Year
  Sex: Male
  Weight: 58.06 kg

DRUGS (1)
  1. POMALYST [Suspect]
     Active Substance: POMALIDOMIDE
     Indication: Plasma cell myeloma
     Dosage: FREQ: DAILY 21 DAYS OF 28
     Route: 048

REACTIONS (3)
  - Blood calcium increased [Unknown]
  - Fatigue [Unknown]
  - Bradykinesia [Unknown]

NARRATIVE: CASE EVENT DATE: 20230405
